FAERS Safety Report 8500039-0 (Version None)
Quarter: 2012Q2

REPORT INFORMATION
  Report Type: 
  Country: None (occurrence: None)
  Receive Date: 20120629
  Receipt Date: 20120622
  Transmission Date: 20120825
  Serious: Yes (Hospitalization)
  Sender: FDA-Public Use
  Company Number: 2012060121

PATIENT
  Age: 63 Year
  Sex: Female

DRUGS (8)
  1. DEMADEX [Suspect]
     Dates: start: 20120401, end: 20120601
  2. VITAMIN D (VITAMIN) [Concomitant]
  3. METOPROLOL TARTRATE [Concomitant]
  4. KLONOPIN [Concomitant]
  5. CHANTIX [Concomitant]
  6. SINGULAIR [Concomitant]
  7. ZOLOFT [Concomitant]
  8. SYMBICORT (BUDESONIDE, FORMOTEROL FUMRATE) [Concomitant]

REACTIONS (3)
  - PNEUMONIA [None]
  - HELICOBACTER GASTRITIS [None]
  - DEHYDRATION [None]
